FAERS Safety Report 13404390 (Version 1)
Quarter: 2017Q2

REPORT INFORMATION
  Report Type: Spontaneous
  Country: US (occurrence: US)
  Receive Date: 20170405
  Receipt Date: 20170405
  Transmission Date: 20170830
  Serious: No
  Sender: FDA-Public Use
  Company Number: US-BAYER-2017-065107

PATIENT

DRUGS (5)
  1. CLARITIN [Suspect]
     Active Substance: LORATADINE
     Indication: LACRIMATION INCREASED
  2. CLARITIN [Suspect]
     Active Substance: LORATADINE
     Indication: SNEEZING
     Dosage: 1 DF, OM
  3. CLARITIN [Suspect]
     Active Substance: LORATADINE
     Indication: HEADACHE
  4. CLARITIN [Suspect]
     Active Substance: LORATADINE
     Indication: SWELLING
  5. CLARITIN [Suspect]
     Active Substance: LORATADINE
     Indication: ERYTHEMA

REACTIONS (1)
  - Drug ineffective [Unknown]
